FAERS Safety Report 22167733 (Version 1)
Quarter: 2023Q2

REPORT INFORMATION
  Report Type: Spontaneous
  Country: US (occurrence: US)
  Receive Date: 20230403
  Receipt Date: 20230403
  Transmission Date: 20230722
  Serious: Yes (Hospitalization, Other)
  Sender: FDA-Public Use
  Company Number: US-AMGEN-USASP2022229049

PATIENT
  Age: 64 Year
  Sex: Female
  Weight: 47.64 kg

DRUGS (28)
  1. MVASI [Suspect]
     Active Substance: BEVACIZUMAB-AWWB
     Indication: Product used for unknown indication
     Route: 065
  2. SOTORASIB [Suspect]
     Active Substance: SOTORASIB
     Indication: Non-small cell lung cancer
     Dosage: UNK
     Route: 048
     Dates: start: 20220720, end: 20221012
  3. ATROVENT [Concomitant]
     Active Substance: IPRATROPIUM BROMIDE
     Dosage: 17 MILLIGRAM
     Route: 050
     Dates: start: 20120615
  4. MELATONIN [Concomitant]
     Active Substance: MELATONIN
     Dosage: 5 MILLIGRAM
     Route: 048
     Dates: start: 20210115
  5. NYSTATIN [Concomitant]
     Active Substance: NYSTATIN
     Dosage: 50 MILLILITER
     Route: 061
     Dates: start: 20220707
  6. LIDOCAINE [Concomitant]
     Active Substance: LIDOCAINE
     Dosage: 30 MILLILITRE
     Route: 061
     Dates: start: 20220707
  7. MAALOX ANTACID [Concomitant]
     Active Substance: ALUMINUM HYDROXIDE\DIMETHICONE\MAGNESIUM HYDROXIDE
     Dosage: 30 MILLILITER
     Route: 061
     Dates: start: 20220707
  8. FLUCONAZOLE [Concomitant]
     Active Substance: FLUCONAZOLE
     Dosage: 200 MILLIGRAM
     Route: 048
     Dates: start: 20220810
  9. CIPROFLOXACIN [Concomitant]
     Active Substance: CIPROFLOXACIN
     Dosage: 500 MILLIGRAM
     Route: 048
     Dates: start: 20220923
  10. ZOMETA [Concomitant]
     Active Substance: ZOLEDRONIC ACID
     Dosage: 4 MILLIGRAM
     Route: 042
     Dates: start: 20220921
  11. OXYGEN [Concomitant]
     Active Substance: OXYGEN
     Dosage: UNK
     Route: 045
     Dates: start: 20220918
  12. SIMVASTATIN [Concomitant]
     Active Substance: SIMVASTATIN
     Dosage: 40 MILLIGRAM
     Route: 048
     Dates: start: 20221017
  13. LEVOTHYROXINE [Concomitant]
     Active Substance: LEVOTHYROXINE
     Dosage: 50 MICROGRAM
     Route: 048
     Dates: start: 20221017
  14. MORPHINE SULFATE [Concomitant]
     Active Substance: MORPHINE SULFATE
     Dosage: 30 MILLIGRAM
     Route: 048
     Dates: start: 20221007
  15. OXYCODONE [Concomitant]
     Active Substance: OXYCODONE
     Dosage: 5 MILLIGRAM
     Route: 048
     Dates: start: 20220720
  16. ACETAMINOPHEN [Concomitant]
     Active Substance: ACETAMINOPHEN
     Dosage: 325 MILLIGRAM
     Route: 048
     Dates: start: 20220720
  17. ONDANSETRON [Concomitant]
     Active Substance: ONDANSETRON
     Dosage: 8 MILLIGRAM
     Route: 048
     Dates: start: 20220720
  18. CEFDINIR [Concomitant]
     Active Substance: CEFDINIR
     Dosage: 300 MILLIGRAM
     Route: 048
     Dates: start: 20221023, end: 20221104
  19. SODIUM CHLORIDE [Concomitant]
     Active Substance: SODIUM CHLORIDE
     Dosage: 1 GRAM
     Route: 048
     Dates: start: 20221023
  20. TAZOBACTAM [Concomitant]
     Active Substance: TAZOBACTAM
     Dosage: 3.375 GRAM
     Route: 042
     Dates: start: 20221115, end: 20221115
  21. PROAIR HFA [Concomitant]
     Active Substance: ALBUTEROL SULFATE
     Dosage: 108 MICROGRAM
     Route: 050
     Dates: start: 20020615
  22. DEXAMETHASONE [Concomitant]
     Active Substance: DEXAMETHASONE
     Dosage: 50 MILLILITER
     Route: 061
     Dates: start: 20220607
  23. ALBUTEROL [Concomitant]
     Active Substance: ALBUTEROL
     Dosage: 3 MILLILITER
     Route: 050
     Dates: start: 20020615
  24. NICOTINE [Concomitant]
     Active Substance: NICOTINE
     Dosage: 14 MILLIGRAM
     Route: 061
     Dates: start: 20220514
  25. BENADRYL [Concomitant]
     Active Substance: DIPHENHYDRAMINE HYDROCHLORIDE
     Dosage: UNK
     Dates: start: 20210115
  26. TYLENOL [Concomitant]
     Active Substance: ACETAMINOPHEN
     Dosage: UNK
     Route: 048
     Dates: start: 20210115
  27. VANCOMYCIN [Concomitant]
     Active Substance: VANCOMYCIN
     Dosage: UNK
     Route: 042
     Dates: start: 20221115, end: 20221116
  28. LEVOFLOXACIN [Concomitant]
     Active Substance: LEVOFLOXACIN
     Dosage: 750 MILLIGRAM
     Dates: start: 20221116, end: 20221123

REACTIONS (1)
  - Acute respiratory failure [Recovered/Resolved]

NARRATIVE: CASE EVENT DATE: 20221115
